FAERS Safety Report 7357440-0 (Version None)
Quarter: 2011Q1

REPORT INFORMATION
  Report Type: 
  Country: None (occurrence: None)
  Receive Date: 20110317
  Receipt Date: 20110121
  Transmission Date: 20110831
  Serious: Yes (Hospitalization, Other)
  Sender: FDA-Public Use
  Company Number: US-BAYER-2011-022987

PATIENT
  Sex: Female
  Weight: 84 kg

DRUGS (1)
  1. YASMIN [Suspect]
     Indication: CONTRACEPTION
     Dosage: UNK, QD
     Dates: start: 20020101, end: 20040101

REACTIONS (7)
  - CHOLELITHIASIS [None]
  - CHEST PAIN [None]
  - ABDOMINAL PAIN UPPER [None]
  - NAUSEA [None]
  - DIARRHOEA [None]
  - CHOLECYSTITIS [None]
  - DYSPEPSIA [None]
